FAERS Safety Report 24402381 (Version 1)
Quarter: 2024Q4

REPORT INFORMATION
  Report Type: Spontaneous
  Country: US (occurrence: US)
  Receive Date: 20241007
  Receipt Date: 20241007
  Transmission Date: 20250115
  Serious: Yes (Death, Life-Threatening, Other)
  Sender: ALKEM
  Company Number: US-ALKEM LABORATORIES LIMITED-US-ALKEM-2024-22693

PATIENT
  Age: 14 Year
  Sex: Female

DRUGS (3)
  1. TOPIRAMATE [Suspect]
     Active Substance: TOPIRAMATE
     Indication: Product used for unknown indication
     Dosage: UNK
     Route: 065
  2. GUANFACINE [Suspect]
     Active Substance: GUANFACINE
     Indication: Product used for unknown indication
     Dosage: UNK
     Route: 065
  3. SERTRALINE [Suspect]
     Active Substance: SERTRALINE HYDROCHLORIDE
     Indication: Product used for unknown indication
     Dosage: UNK
     Route: 065

REACTIONS (11)
  - Toxicity to various agents [Fatal]
  - Cardiac arrest [Unknown]
  - Coma [Unknown]
  - Ventricular arrhythmia [Unknown]
  - Respiratory depression [Unknown]
  - Bradycardia [Unknown]
  - Hypertension [Unknown]
  - Metabolic acidosis [Unknown]
  - Sedation [Unknown]
  - Toxicity to various agents [Unknown]
  - Depressed level of consciousness [Unknown]
